FAERS Safety Report 16162717 (Version 1)
Quarter: 2019Q2

REPORT INFORMATION
  Report Type: Spontaneous
  Country: US (occurrence: US)
  Receive Date: 20190405
  Receipt Date: 20190405
  Transmission Date: 20190711
  Serious: Yes (Other)
  Sender: FDA-Public Use
  Company Number: US-BAYER-2019-068519

PATIENT
  Age: 76 Year
  Sex: Male

DRUGS (2)
  1. ACETYLSALICYLIC ACID (CARDIO) [Suspect]
     Active Substance: ASPIRIN
     Indication: PHLEBOTOMY
     Dosage: 81 MG, QD
  2. HYDROXYUREA. [Concomitant]
     Active Substance: HYDROXYUREA
     Indication: PHLEBOTOMY

REACTIONS (3)
  - Subdural haematoma [None]
  - Product use in unapproved indication [None]
  - Off label use [None]
